FAERS Safety Report 19360465 (Version 2)
Quarter: 2021Q2

REPORT INFORMATION
  Report Type: Spontaneous
  Country: IN (occurrence: IN)
  Receive Date: 20210601
  Receipt Date: 20210607
  Transmission Date: 20210717
  Serious: Yes (Hospitalization, Other)
  Sender: FDA-Public Use
  Company Number: IN-PFIZER INC-2019031596

PATIENT
  Age: 80 Year
  Sex: Female

DRUGS (16)
  1. AROMASIN [Suspect]
     Active Substance: EXEMESTANE
     Dosage: UNK
     Dates: start: 201506
  2. FULVESTRANT. [Concomitant]
     Active Substance: FULVESTRANT
     Dosage: 500 MG (250MG?R,250MG?L)
     Route: 030
  3. TRAMADOL. [Concomitant]
     Active Substance: TRAMADOL
     Dosage: 50 MG
  4. DULCOLAX (BISACODYL) [Concomitant]
     Active Substance: BISACODYL
     Dosage: UNK
  5. PALBACE [Suspect]
     Active Substance: PALBOCICLIB
     Dosage: 125 MG, CYCLIC (ONCE A DAY 21 DAYS/28 DAYS)
     Route: 048
     Dates: start: 20190415
  6. FULVESTRANT. [Concomitant]
     Active Substance: FULVESTRANT
     Dosage: UNK
     Dates: start: 202002
  7. NUCOXIA MR [Concomitant]
     Dosage: UNK, 2X/DAY(1?0?1 X 5 DAYS )
  8. SPORLAC [Concomitant]
     Dosage: UNK, 1X/DAY(0?1?0 X 1WK)
  9. ZOLEDRONIC ACID [Concomitant]
     Active Substance: ZOLEDRONIC ACID
     Dosage: 4 MG, IN 100ML NS X 10 MIN
  10. PREGABALIN. [Concomitant]
     Active Substance: PREGABALIN
     Dosage: UNK
  11. DUPHALAC [Concomitant]
     Active Substance: LACTULOSE
     Dosage: 15 ML, 2X/DAY(1?1 )
  12. PALBACE [Suspect]
     Active Substance: PALBOCICLIB
     Indication: BREAST CANCER METASTATIC
     Dosage: UNK
     Dates: start: 201803
  13. PALBACE [Suspect]
     Active Substance: PALBOCICLIB
     Dosage: 100 MG, CYCLIC (ONCE A 21 DAYS MONT X 3MT)
  14. FULVESTRANT. [Concomitant]
     Active Substance: FULVESTRANT
     Dosage: 500 MG
     Route: 030
     Dates: start: 202002
  15. AROMASIN [Suspect]
     Active Substance: EXEMESTANE
     Dosage: 25 MG, DAILY
  16. SHELCAL [CALCIUM CARBONATE;COLECALCIFEROL] [Concomitant]
     Dosage: 500 MG, 1X/DAY(0?1?0 X 3MT)

REACTIONS (11)
  - Neoplasm progression [Unknown]
  - Arthralgia [Unknown]
  - Cough [Unknown]
  - Nasopharyngitis [Unknown]
  - Osteoporosis [Unknown]
  - Postictal state [Unknown]
  - Blood pressure decreased [Unknown]
  - Somnolence [Unknown]
  - Dyspnoea exertional [Unknown]
  - Generalised tonic-clonic seizure [Recovering/Resolving]
  - Back pain [Unknown]
